FAERS Safety Report 14150625 (Version 1)
Quarter: 2017Q4

REPORT INFORMATION
  Report Type: Report from Study
  Country: JP (occurrence: JP)
  Receive Date: 20171101
  Receipt Date: 20171101
  Transmission Date: 20180321
  Serious: Yes (Other)
  Sender: FDA-Public Use
  Company Number: JP-MYLANLABS-2017M1068065

PATIENT
  Age: 59 Year
  Sex: Female

DRUGS (2)
  1. FLUOROURACIL. [Suspect]
     Active Substance: FLUOROURACIL
     Indication: ANAL SQUAMOUS CELL CARCINOMA
     Dosage: 750 MG/M2/DAY (DAYS 1-5); ONE COURSE OF CHEMOTHERAPY WAS FOUR WEEKS INCLUDING A REST PERIOD
     Route: 065
  2. MITOMYCIN. [Suspect]
     Active Substance: MITOMYCIN
     Indication: ANAL SQUAMOUS CELL CARCINOMA
     Dosage: 10MG/M2 (DAY1): ONE COURSE OF CHEMOTHERAPY WAS FOUR WEEKS INCLUDING A REST PERIOD
     Route: 065

REACTIONS (3)
  - Cystitis [Unknown]
  - Leukopenia [Unknown]
  - Thrombocytopenia [Unknown]
